FAERS Safety Report 8463855 (Version 2)
Quarter: 2012Q4

REPORT INFORMATION
  Report Type: 
  Country: ES (occurrence: ES)
  Receive Date: 20120316
  Receipt Date: 20121029
  Transmission Date: 20130627
  Serious: Yes (Other)
  Sender: FDA-Public Use
  Company Number: PHHY2012ES020343

PATIENT
  Age: 78 Year
  Sex: Male

DRUGS (1)
  1. ZOLEDRONATE [Suspect]
     Indication: MULTIPLE MYELOMA
     Dosage: UNK UKN, UNK
     Route: 042

REACTIONS (6)
  - Osteonecrosis of jaw [Unknown]
  - Pain in jaw [Unknown]
  - Infection [Unknown]
  - Fistula [Unknown]
  - Pathological fracture [Unknown]
  - Osteolysis [Unknown]
